FAERS Safety Report 5019163-2 (Version None)
Quarter: 2006Q2

REPORT INFORMATION
  Report Type: 
  Country: None (occurrence: None)
  Receive Date: 20060531
  Receipt Date: 20060511
  Transmission Date: 20061013
  Serious: Yes (Other)
  Sender: FDA-Public Use
  Company Number: ENT 2006-0046

PATIENT
  Age: 74 Year
  Sex: Male
  Weight: 131.9 kg

DRUGS (13)
  1. COMTAN [Suspect]
     Indication: PARKINSON'S DISEASE
     Dosage: 600 MG, 3 IN 1 D, ORAL
     Route: 048
     Dates: start: 20060131
  2. SINEMET [Suspect]
     Dosage: 50/200 TID, ORAL
     Route: 048
  3. HYDROXYUREA [Concomitant]
  4. LIPITOR [Concomitant]
  5. METFORMIN [Concomitant]
  6. LEVOTHYROXINE SODIUM [Concomitant]
  7. LASIX [Concomitant]
  8. POTASSIUM [Concomitant]
  9. DARVOCET [Concomitant]
  10. GERITOL COMPLETE [Concomitant]
  11. FISH OIL [Concomitant]
  12. FOLIC ACID [Concomitant]
  13. TYLENOL (CAPLET) [Concomitant]

REACTIONS (2)
  - DIARRHOEA [None]
  - THROMBOCYTOPENIA [None]
